FAERS Safety Report 15390599 (Version 1)
Quarter: 2018Q3

REPORT INFORMATION
  Report Type: Spontaneous
  Country: US (occurrence: US)
  Receive Date: 20180909
  Receipt Date: 20180909
  Transmission Date: 20181010
  Serious: No
  Sender: FDA-Public Use
  Company Number: None

PATIENT
  Age: 28 Year
  Sex: Female
  Weight: 42.75 kg

DRUGS (3)
  1. NORETHINDRONE. [Concomitant]
     Active Substance: NORETHINDRONE
  2. CREST COMPLETE MULTI?BENEFIT EXTRA WHITENING WITH TARTAR PROTECTION [Suspect]
     Active Substance: SODIUM FLUORIDE
     Indication: DENTAL CLEANING
     Dosage: ?          QUANTITY:1 TOOTHBRUSH?SIZED;?
     Dates: start: 20180820, end: 20180907
  3. NATURE MADE B12 [Concomitant]

REACTIONS (7)
  - Oral mucosal exfoliation [None]
  - Toothache [None]
  - Tongue blistering [None]
  - Tongue discomfort [None]
  - Dry mouth [None]
  - Gingival pain [None]
  - Oral pain [None]

NARRATIVE: CASE EVENT DATE: 20180827
